FAERS Safety Report 24073353 (Version 1)
Quarter: 2024Q3

REPORT INFORMATION
  Report Type: Spontaneous
  Country: US (occurrence: US)
  Receive Date: 20240710
  Receipt Date: 20240710
  Transmission Date: 20241017
  Serious: Yes (Life-Threatening, Hospitalization)
  Sender: DR REDDYS
  Company Number: None

PATIENT
  Sex: Female

DRUGS (1)
  1. FENTANYL [Suspect]
     Active Substance: FENTANYL\FENTANYL CITRATE
     Indication: Product used for unknown indication
     Route: 064

REACTIONS (5)
  - Toxicity to various agents [Unknown]
  - Neonatal complications of substance abuse [Unknown]
  - Oppositional defiant disorder [Unknown]
  - Disinhibited social engagement disorder of childhood [Unknown]
  - Attention deficit hyperactivity disorder [Unknown]
